FAERS Safety Report 9563377 (Version 1)
Quarter: 2013Q3

REPORT INFORMATION
  Report Type: Report from Study
  Country: AU (occurrence: AU)
  Receive Date: 20130927
  Receipt Date: 20130927
  Transmission Date: 20140515
  Serious: Yes (Other)
  Sender: FDA-Public Use
  Company Number: PHHY2013AU105976

PATIENT
  Sex: Female

DRUGS (4)
  1. CLOZAPINE [Suspect]
     Dosage: UNK
  2. ESCITALOPRAM [Suspect]
     Dosage: UNK
  3. THYROXIN [Suspect]
     Dosage: UNK
  4. EPILIM [Concomitant]
     Dosage: UNK

REACTIONS (2)
  - Electrocardiogram QT prolonged [Unknown]
  - Antipsychotic drug level increased [Unknown]
